FAERS Safety Report 14171944 (Version 1)
Quarter: 2017Q4

REPORT INFORMATION
  Report Type: Spontaneous
  Country: US (occurrence: US)
  Receive Date: 20171108
  Receipt Date: 20171108
  Transmission Date: 20180321
  Serious: Yes (Hospitalization)
  Sender: FDA-Public Use
  Company Number: US-BEH-2017084898

PATIENT
  Age: 27 Year
  Sex: Male
  Weight: 60.77 kg

DRUGS (9)
  1. LOSARTAN. [Concomitant]
     Active Substance: LOSARTAN
  2. TOPIRAMATE. [Concomitant]
     Active Substance: TOPIRAMATE
  3. HIZENTRA [Suspect]
     Active Substance: HUMAN IMMUNOGLOBULIN G
     Dosage: UNK
     Route: 058
  4. LEVETIRACETAM. [Concomitant]
     Active Substance: LEVETIRACETAM
  5. ONFI [Concomitant]
     Active Substance: CLOBAZAM
  6. ANAKIT [Concomitant]
  7. HIZENTRA [Suspect]
     Active Substance: HUMAN IMMUNOGLOBULIN G
     Indication: IMMUNODEFICIENCY COMMON VARIABLE
     Dosage: 1 G, QD
     Route: 058
     Dates: start: 20130306
  8. VIMPAT [Concomitant]
     Active Substance: LACOSAMIDE
  9. BANZEL [Concomitant]
     Active Substance: RUFINAMIDE

REACTIONS (1)
  - Seizure [Unknown]
